FAERS Safety Report 13864642 (Version 3)
Quarter: 2017Q3

REPORT INFORMATION
  Report Type: Report from Study
  Country: CA (occurrence: CA)
  Receive Date: 20170814
  Receipt Date: 20170901
  Transmission Date: 20171127
  Serious: Yes (Hospitalization)
  Sender: FDA-Public Use
  Company Number: PHHO2017CA011629

PATIENT
  Age: 74 Year
  Sex: Female
  Weight: 85.8 kg

DRUGS (48)
  1. LEE011 [Suspect]
     Active Substance: RIBOCICLIB
     Dosage: 600 MG, QD (3 WEEKS ON, 1 WEEK OFF)
     Route: 048
     Dates: start: 20160708, end: 20160728
  2. LEE011 [Suspect]
     Active Substance: RIBOCICLIB
     Dosage: UNK UNK, NO TREATMENT
     Route: 048
     Dates: start: 20161022, end: 20161028
  3. HYDROMORPHONE [Concomitant]
     Active Substance: HYDROMORPHONE
     Indication: BACK PAIN
     Dosage: UNK
     Route: 048
     Dates: start: 201512
  4. SENOKOT [Concomitant]
     Active Substance: SENNOSIDES
     Indication: CONSTIPATION
     Dosage: UNK
     Route: 048
     Dates: start: 20160318
  5. WARFARIN [Concomitant]
     Active Substance: WARFARIN
     Indication: PROPHYLAXIS
     Dosage: UNK
     Route: 048
     Dates: start: 20160812
  6. LEE011 [Suspect]
     Active Substance: RIBOCICLIB
     Dosage: UNK UNK, NO TREATMENT
     Route: 048
     Dates: start: 20160401, end: 20160415
  7. LEE011 [Suspect]
     Active Substance: RIBOCICLIB
     Dosage: 600 MG, QD (3 WEEKS ON, 1 WEEK OFF)
     Route: 048
     Dates: start: 20161125, end: 20161215
  8. LEE011 [Suspect]
     Active Substance: RIBOCICLIB
     Dosage: UNK UNK, NO TREATMENT
     Route: 048
     Dates: start: 20170113, end: 20170119
  9. LEE011 [Suspect]
     Active Substance: RIBOCICLIB
     Dosage: 600 MG, QD (3 WEEKS ON, 1 WEEK OFF)
     Route: 048
     Dates: start: 20170317, end: 20170406
  10. LEE011 [Suspect]
     Active Substance: RIBOCICLIB
     Dosage: 600 MG, QD
     Route: 048
     Dates: end: 20170727
  11. LEE011 [Suspect]
     Active Substance: RIBOCICLIB
     Dosage: UNK UNK, NO TREATMENT
     Route: 048
     Dates: start: 20160729, end: 20160930
  12. LEE011 [Suspect]
     Active Substance: RIBOCICLIB
     Dosage: UNK UNK, NO TREATMENT
     Route: 048
     Dates: start: 20161119, end: 20161124
  13. LEE011 [Suspect]
     Active Substance: RIBOCICLIB
     Dosage: UNK UNK, NO TREATMENT
     Route: 048
     Dates: start: 20170210, end: 20170216
  14. LEE011 [Suspect]
     Active Substance: RIBOCICLIB
     Dosage: 600 MG, QD (3 WEEKS ON, 1 WEEK OFF)
     Route: 048
     Dates: start: 20170414, end: 20170504
  15. LEE011 [Suspect]
     Active Substance: RIBOCICLIB
     Dosage: UNK UNK, NO TREATMENT
     Route: 048
     Dates: start: 20170630, end: 20170706
  16. COMPARATOR FULVESTRANT [Suspect]
     Active Substance: FULVESTRANT
     Indication: BREAST CANCER
     Dosage: 500 MG, Q28D
     Route: 030
     Dates: start: 20160219, end: 20170707
  17. RAMIPRIL. [Concomitant]
     Active Substance: RAMIPRIL
     Indication: HYPERTENSION
     Dosage: UNK
     Route: 048
     Dates: start: 201512
  18. METOPROLOL. [Concomitant]
     Active Substance: METOPROLOL
     Indication: PROPHYLAXIS
     Dosage: UNK
     Route: 048
     Dates: start: 20160812
  19. LEE011 [Suspect]
     Active Substance: RIBOCICLIB
     Dosage: 600 MG, QD (3 WEEKS ON, 1 WEEK OFF)
     Route: 048
     Dates: start: 20160416, end: 20160505
  20. LEE011 [Suspect]
     Active Substance: RIBOCICLIB
     Dosage: UNK UNK, NO TREATMENT
     Route: 048
     Dates: start: 20160506, end: 20160512
  21. LEE011 [Suspect]
     Active Substance: RIBOCICLIB
     Dosage: 600 MG, QD (3 WEEKS ON, 1 WEEK OFF)
     Route: 048
     Dates: start: 20170217, end: 20170309
  22. LEE011 [Suspect]
     Active Substance: RIBOCICLIB
     Dosage: 600 MG, QD (3 WEEKS ON, 1 WEEK OFF)
     Route: 048
     Dates: start: 20170609, end: 20170629
  23. LIPITOR [Concomitant]
     Active Substance: ATORVASTATIN CALCIUM
     Indication: DYSLIPIDAEMIA
     Dosage: UNK
     Route: 048
     Dates: start: 2010
  24. LEE011 [Suspect]
     Active Substance: RIBOCICLIB
     Dosage: 600 MG, QD (3 WEEKS ON, 1 WEEK OFF)
     Route: 048
     Dates: start: 20160318, end: 20160331
  25. LEE011 [Suspect]
     Active Substance: RIBOCICLIB
     Dosage: UNK UNK, NO TREATMENT
     Route: 048
     Dates: start: 20170310, end: 20170316
  26. CALCIUM [Concomitant]
     Active Substance: CALCIUM
     Indication: SUPPLEMENTATION THERAPY
     Dosage: UNK
     Route: 048
     Dates: start: 2010
  27. LAX-A-DAY [Concomitant]
     Indication: CONSTIPATION
     Dosage: UNK
     Route: 048
     Dates: start: 201512
  28. ATIVAN [Concomitant]
     Active Substance: LORAZEPAM
     Indication: TREMOR
     Dosage: UNK
     Route: 048
     Dates: start: 20160401
  29. LEE011 [Suspect]
     Active Substance: RIBOCICLIB
     Dosage: UNK UNK, NO TREATMENT
     Route: 048
     Dates: start: 20160311, end: 20160317
  30. LEE011 [Suspect]
     Active Substance: RIBOCICLIB
     Dosage: UNK UNK, NO TREATMENT
     Route: 048
     Dates: start: 20160604, end: 20160609
  31. LEE011 [Suspect]
     Active Substance: RIBOCICLIB
     Dosage: UNK UNK, NO TREATMENT
     Route: 048
     Dates: start: 20160701, end: 20160707
  32. LEE011 [Suspect]
     Active Substance: RIBOCICLIB
     Dosage: UNK UNK, NO TREATMENT
     Route: 048
     Dates: start: 20170602, end: 20170608
  33. VITAMIN D [Concomitant]
     Active Substance: CHOLECALCIFEROL
     Indication: SUPPLEMENTATION THERAPY
     Dosage: UNK
     Route: 048
     Dates: start: 2010
  34. FENTANYL. [Concomitant]
     Active Substance: FENTANYL
     Indication: BACK PAIN
     Dosage: UNK
     Route: 062
     Dates: start: 20151223
  35. CLONAZEPAM. [Concomitant]
     Active Substance: CLONAZEPAM
     Indication: ANXIETY
     Dosage: UNK
     Route: 048
     Dates: start: 201601
  36. LEE011 [Suspect]
     Active Substance: RIBOCICLIB
     Indication: BREAST CANCER
     Dosage: 600 MG, QD (3 WEEKS ON, 1 WEEK OFF)
     Route: 048
     Dates: start: 20160219, end: 20160310
  37. LEE011 [Suspect]
     Active Substance: RIBOCICLIB
     Dosage: 600 MG, QD (3 WEEKS ON, 1 WEEK OFF)
     Route: 048
     Dates: start: 20160513, end: 20160603
  38. LEE011 [Suspect]
     Active Substance: RIBOCICLIB
     Dosage: 600 MG, QD (3 WEEKS ON, 1 WEEK OFF)
     Route: 048
     Dates: start: 20160610, end: 20160630
  39. LEE011 [Suspect]
     Active Substance: RIBOCICLIB
     Dosage: 600 MG, QD (3 WEEKS ON, 1 WEEK OFF)
     Route: 048
     Dates: start: 20161029, end: 20161118
  40. LEE011 [Suspect]
     Active Substance: RIBOCICLIB
     Dosage: 600 MG, QD (3 WEEKS ON, 1 WEEK OFF)
     Route: 048
     Dates: start: 20170120, end: 20170209
  41. PANTOPRAZOLE [Concomitant]
     Active Substance: PANTOPRAZOLE
     Indication: GASTROOESOPHAGEAL REFLUX DISEASE
     Dosage: UNK
     Route: 048
     Dates: start: 20160306
  42. LEE011 [Suspect]
     Active Substance: RIBOCICLIB
     Dosage: 600 MG, QD (3 WEEKS ON, 1 WEEK OFF)
     Route: 048
     Dates: start: 20161001, end: 20161021
  43. LEE011 [Suspect]
     Active Substance: RIBOCICLIB
     Dosage: UNK UNK, NO TREATMENT
     Route: 048
     Dates: start: 20161216, end: 20161222
  44. LEE011 [Suspect]
     Active Substance: RIBOCICLIB
     Dosage: 600 MG, QD (3 WEEKS ON, 1 WEEK OFF)
     Route: 048
     Dates: start: 20161223, end: 20170112
  45. LEE011 [Suspect]
     Active Substance: RIBOCICLIB
     Dosage: UNK UNK, NO TREATMENT
     Route: 048
     Dates: start: 20170407, end: 20170413
  46. LEE011 [Suspect]
     Active Substance: RIBOCICLIB
     Dosage: UNK UNK, NO TREATMENT
     Route: 048
     Dates: start: 20170505, end: 20170511
  47. LEE011 [Suspect]
     Active Substance: RIBOCICLIB
     Dosage: 600 MG, QD (3 WEEKS ON, 1 WEEK OFF)
     Route: 048
     Dates: start: 20170512, end: 20170601
  48. GABAPENTIN. [Concomitant]
     Active Substance: GABAPENTIN
     Indication: ARTHRALGIA
     Dosage: UNK
     Route: 048
     Dates: start: 20160812

REACTIONS (2)
  - Pancytopenia [Recovering/Resolving]
  - Pneumonia [Recovering/Resolving]

NARRATIVE: CASE EVENT DATE: 20170801
